FAERS Safety Report 8307716-5 (Version None)
Quarter: 2012Q2

REPORT INFORMATION
  Report Type: 
  Country: None (occurrence: None)
  Receive Date: 20120424
  Receipt Date: 20120419
  Transmission Date: 20120825
  Serious: Yes (Death)
  Sender: FDA-Public Use
  Company Number: PHHY2012MX034081

PATIENT
  Sex: Male

DRUGS (3)
  1. NEBIVOLOL HCL [Concomitant]
     Indication: HYPERTENSION
     Dosage: 1 DF PER DAY
     Dates: start: 20111101
  2. GALVUS MET [Suspect]
     Indication: DIABETES MELLITUS
     Dosage: 2 TABLET PER DAY
     Dates: start: 20111101
  3. DIOVAN HCT [Suspect]
     Indication: HYPERTENSION
     Dosage: 1 TABLET (160/12.5MG) PER DAY
     Dates: start: 20111101, end: 20120414

REACTIONS (1)
  - CARDIAC ARREST [None]
